FAERS Safety Report 9330689 (Version 1)
Quarter: 2013Q2

REPORT INFORMATION
  Report Type: Spontaneous
  Country: JP (occurrence: JP)
  Receive Date: 20130605
  Receipt Date: 20130605
  Transmission Date: 20140414
  Serious: Yes (Other)
  Sender: FDA-Public Use
  Company Number: JP-ELI_LILLY_AND_COMPANY-JP201305008671

PATIENT
  Sex: Male

DRUGS (4)
  1. CYMBALTA [Suspect]
     Dosage: UNK
     Route: 048
  2. CYMBALTA [Suspect]
     Dosage: 600 MG, UNK
     Route: 048
     Dates: start: 20130523
  3. CYMBALTA [Suspect]
     Dosage: UNK
     Route: 048
  4. DEPAKENE [Concomitant]
     Route: 048

REACTIONS (2)
  - Altered state of consciousness [Unknown]
  - Overdose [Unknown]
